FAERS Safety Report 4310959-9 (Version None)
Quarter: 2004Q1

REPORT INFORMATION
  Report Type: 
  Country: None (occurrence: None)
  Receive Date: 20040302
  Receipt Date: 20040217
  Transmission Date: 20041129
  Serious: Yes (Hospitalization)
  Sender: FDA-Public Use
  Company Number: S04-FRA-00781-01

PATIENT
  Age: 74 Year
  Sex: Female

DRUGS (6)
  1. SEROPRAM (CITALOPRAM HYDROBROMIDE) [Suspect]
     Indication: DEPRESSION
     Dosage: 20 MG QD PO
     Route: 048
     Dates: start: 20010101
  2. CLARITIN [Suspect]
     Dosage: 10 MG QD PO
     Route: 048
     Dates: start: 20031119
  3. LEXOMIL (BROMAZEPAM) [Suspect]
     Dosage: 6 MG TID PO
     Route: 048
  4. LEXOMIL (BROMAZEPAM) [Suspect]
     Dosage: 4.5 MG QD PO
     Route: 048
  5. INTERCRON (CROMOGLICATE SODIUM) [Concomitant]
  6. DIGOXIN [Concomitant]

REACTIONS (7)
  - BRADYPHRENIA [None]
  - DISORIENTATION [None]
  - DRUG INTERACTION [None]
  - DYSSTASIA [None]
  - FALL [None]
  - MALAISE [None]
  - SOMNOLENCE [None]
